FAERS Safety Report 12876345 (Version 2)
Quarter: 2016Q4

REPORT INFORMATION
  Report Type: Spontaneous
  Country: DK (occurrence: DK)
  Receive Date: 20161024
  Receipt Date: 20161025
  Transmission Date: 20170207
  Serious: Yes (Death)
  Sender: FDA-Public Use
  Company Number: DK-SA-2016SA193272

PATIENT
  Age: 77 Year
  Sex: Male

DRUGS (1)
  1. MYOZYME [Suspect]
     Active Substance: ALGLUCOSIDASE ALFA
     Route: 042
     Dates: start: 20150807, end: 20160915

REACTIONS (1)
  - Lung infection [Fatal]
